FAERS Safety Report 17907237 (Version 1)
Quarter: 2020Q2

REPORT INFORMATION
  Report Type: Spontaneous
  Country: US (occurrence: US)
  Receive Date: 20200617
  Receipt Date: 20200617
  Transmission Date: 20200714
  Serious: Yes (Life-Threatening, Hospitalization, Disabling)
  Sender: FDA-Public Use
  Company Number: None

PATIENT
  Age: 91 Year
  Sex: Female
  Weight: 88.45 kg

DRUGS (1)
  1. ALTEPLASE. [Suspect]
     Active Substance: ALTEPLASE
     Indication: ISCHAEMIC STROKE
     Dosage: ?          OTHER FREQUENCY:BOLUS+DRIP;?
     Route: 041
     Dates: start: 20200616, end: 20200616

REACTIONS (4)
  - Subdural haematoma [None]
  - Unresponsive to stimuli [None]
  - Brain midline shift [None]
  - Ischaemic stroke [None]

NARRATIVE: CASE EVENT DATE: 20200617
